FAERS Safety Report 5423157-2 (Version None)
Quarter: 2007Q3

REPORT INFORMATION
  Report Type: 
  Country: None (occurrence: None)
  Receive Date: 20070821
  Receipt Date: 20050919
  Transmission Date: 20080115
  Serious: Yes (Death)
  Sender: FDA-Public Use
  Company Number: GXKR2005GB01645

PATIENT
  Age: 17 Year
  Sex: Female

DRUGS (4)
  1. MIRTAZAPINE [Suspect]
  2. DILTIAZEM [Suspect]
  3. ACETAMINOPHEN [Suspect]
  4. ZOPICLONE (ZOPICLONE) [Suspect]

REACTIONS (3)
  - COMPLETED SUICIDE [None]
  - SUICIDAL IDEATION [None]
  - TOXICOLOGIC TEST ABNORMAL [None]
